FAERS Safety Report 23421316 (Version 2)
Quarter: 2024Q1

REPORT INFORMATION
  Report Type: Spontaneous
  Country: IT (occurrence: IT)
  Receive Date: 20240119
  Receipt Date: 20240123
  Transmission Date: 20240409
  Serious: Yes (Hospitalization)
  Sender: FDA-Public Use
  Company Number: IT-MYLANLABS-2024M1005320

PATIENT
  Age: 51 Year
  Sex: Female

DRUGS (19)
  1. BORTEZOMIB [Suspect]
     Active Substance: BORTEZOMIB
     Indication: Plasma cell myeloma
     Dosage: UNK, CYCLE (4 INDUCTION CYCLES ALONG WITH CYCLOPHOSPHAMIDE AND DEXAMETHASONE)
     Route: 065
  2. BORTEZOMIB [Suspect]
     Active Substance: BORTEZOMIB
     Dosage: UNK, CYCLE (TWO CONSOLIDATION CYCLES ALONG WITH LENALIDOMIDE AND DEXAMETHASONE)
     Route: 065
  3. CYCLOPHOSPHAMIDE [Suspect]
     Active Substance: CYCLOPHOSPHAMIDE
     Indication: Plasma cell myeloma
     Dosage: UNK, CYCLE (4 INDUCTION CYCLES ALONG WITH BORTEZOMIB AND DEXAMETHASONE)
     Route: 065
  4. DEXAMETHASONE [Suspect]
     Active Substance: DEXAMETHASONE
     Indication: Plasma cell myeloma
     Dosage: UNK, CYCLE (4 INDUCTION CYCLES ALONG WITH BORTEZOMIB AND CYCLOPHOSPHAMIDE)
     Route: 065
  5. DEXAMETHASONE [Suspect]
     Active Substance: DEXAMETHASONE
     Dosage: UNK, CYCLE (8 CYCLES OF INDUCTION THERAPY ALONG WITH CARFILZOMIB AND POMALIDOMIDE)
     Route: 065
     Dates: start: 2020
  6. DEXAMETHASONE [Suspect]
     Active Substance: DEXAMETHASONE
     Dosage: UNK, THIRD LINE THERAPY ALONG WITH DARATUMUMAB AND LENALIDOMIDE
     Route: 065
  7. DEXAMETHASONE [Suspect]
     Active Substance: DEXAMETHASONE
     Dosage: UNK, CYCLE (TWO CONSOLIDATION CYCLES ALONG WITH BORTEZOMIB AND LENALIDOMIDE)
     Route: 065
  8. LENALIDOMIDE [Suspect]
     Active Substance: LENALIDOMIDE
     Indication: Plasma cell myeloma
     Dosage: UNK, CYCLE (TWO CONSOLIDATION CYCLES ALONG WITH BORTEZOMIB AND DEXAMETHASONE)
     Route: 065
  9. LENALIDOMIDE [Suspect]
     Active Substance: LENALIDOMIDE
     Dosage: UNK, MAINTENANCE THERAPY
     Route: 065
  10. LENALIDOMIDE [Suspect]
     Active Substance: LENALIDOMIDE
     Dosage: UNK, THIRD LINE THERAPY ALONG WITH DARATUMUMAB AND DEXAMETHASONE
     Route: 065
  11. CARFILZOMIB [Suspect]
     Active Substance: CARFILZOMIB
     Indication: Plasma cell myeloma
     Dosage: UNK, CYCLE (8 CYCLES OF INDUCTION THERAPY ALONG WITH POMALIDOMIDE AND DEXAMETHASONE)
     Route: 065
     Dates: start: 2020
  12. POMALIDOMIDE [Suspect]
     Active Substance: POMALIDOMIDE
     Indication: Plasma cell myeloma
     Dosage: UNK, CYCLE (8 CYCLES OF INDUCTION THERAPY ALONG WITH CARFILZOMIB AND DEXAMETHASONE)
     Route: 065
     Dates: start: 2020
  13. POMALIDOMIDE [Suspect]
     Active Substance: POMALIDOMIDE
     Dosage: UNK, MAINTENANCE THERAPY
     Route: 065
  14. DARATUMUMAB [Suspect]
     Active Substance: DARATUMUMAB
     Indication: Plasma cell myeloma
     Dosage: UNK, THIRD LINE THERAPY ALONG WITH LENALIDOMIDE AND DEXAMETHASONE
     Route: 065
  15. TOCILIZUMAB [Suspect]
     Active Substance: TOCILIZUMAB
     Indication: Cytokine release syndrome
     Dosage: UNK
     Route: 065
  16. TOZINAMERAN [Concomitant]
     Active Substance: TOZINAMERAN
     Indication: COVID-19 immunisation
     Dosage: UNK, THREE DOSES
     Route: 065
     Dates: end: 202203
  17. MOLNUPIRAVIR [Concomitant]
     Active Substance: MOLNUPIRAVIR
     Indication: COVID-19
     Dosage: UNK
     Route: 065
     Dates: start: 2022
  18. REMDESIVIR [Concomitant]
     Active Substance: REMDESIVIR
     Indication: COVID-19
     Dosage: UNK
     Route: 065
     Dates: start: 2022
  19. CILGAVIMAB\TIXAGEVIMAB [Concomitant]
     Active Substance: CILGAVIMAB\TIXAGEVIMAB
     Indication: COVID-19
     Dosage: UNK
     Route: 065
     Dates: start: 2022

REACTIONS (4)
  - COVID-19 [Recovered/Resolved]
  - Bronchopulmonary aspergillosis [Unknown]
  - COVID-19 pneumonia [Recovering/Resolving]
  - Respiratory failure [Recovering/Resolving]

NARRATIVE: CASE EVENT DATE: 20220101
